FAERS Safety Report 25615272 (Version 1)
Quarter: 2025Q3

REPORT INFORMATION
  Report Type: Spontaneous
  Country: US (occurrence: US)
  Receive Date: 20250729
  Receipt Date: 20250729
  Transmission Date: 20251021
  Serious: No
  Sender: PHARMACOSMOS A/S
  Company Number: US-NEBO-699796

PATIENT
  Age: 35 Year
  Sex: Female
  Weight: 68 kg

DRUGS (4)
  1. VITAMIN D3 [Concomitant]
     Active Substance: CHOLECALCIFEROL
     Indication: Iron deficiency anaemia
  2. MAGNESIUM [Concomitant]
     Active Substance: MAGNESIUM
  3. ZINC [Concomitant]
     Active Substance: ZINC
  4. MONOFERRIC [Suspect]
     Active Substance: FERRIC DERISOMALTOSE
     Indication: Product used for unknown indication
     Dates: start: 20250616, end: 20250616

REACTIONS (6)
  - Nausea [Recovering/Resolving]
  - Dysuria [Not Recovered/Not Resolved]
  - Urticaria [Recovering/Resolving]
  - Blood urine present [Not Recovered/Not Resolved]
  - Chest discomfort [Recovering/Resolving]
  - Erythema [Recovering/Resolving]

NARRATIVE: CASE EVENT DATE: 20250616
